FAERS Safety Report 20224528 (Version 1)
Quarter: 2021Q4

REPORT INFORMATION
  Report Type: Spontaneous
  Country: US (occurrence: None)
  Receive Date: 20211223
  Receipt Date: 20211223
  Transmission Date: 20220304
  Serious: No
  Sender: FDA-Public Use
  Company Number: None

PATIENT
  Age: 24 Year
  Sex: Female
  Weight: 61.2 kg

DRUGS (3)
  1. TOCILIZUMAB [Suspect]
     Active Substance: TOCILIZUMAB
     Indication: COVID-19
     Dosage: OTHER FREQUENCY : ONCE;?
     Route: 042
     Dates: start: 20211223, end: 20211223
  2. metaclopiramide 10 mg TID prn [Concomitant]
     Dates: start: 20210928
  3. Prenatal Vitamin daily [Concomitant]

REACTIONS (5)
  - Product prescribing error [None]
  - Wrong product administered [None]
  - Maternal exposure during pregnancy [None]
  - Product dispensing error [None]
  - Foetal exposure during pregnancy [None]

NARRATIVE: CASE EVENT DATE: 20211223
